FAERS Safety Report 8954131 (Version 1)
Quarter: 2012Q4

REPORT INFORMATION
  Report Type: 
  Country: US (occurrence: US)
  Receive Date: 20121207
  Receipt Date: 20121207
  Transmission Date: 20130627
  Serious: No
  Sender: FDA-Public Use
  Company Number: US-GLAXOSMITHKLINE-A0985415A

PATIENT
  Age: 68 Year
  Sex: Male
  Weight: 79.1 kg

DRUGS (2)
  1. HYCAMTIN [Suspect]
     Indication: PRODUCT USED FOR UNKNOWN INDICATION
     Dosage: 1MG Unknown
     Route: 048
     Dates: end: 20120909
  2. PROCHLORPERAZINE [Concomitant]
     Dosage: 10MG As required
     Route: 048

REACTIONS (4)
  - Nausea [Recovering/Resolving]
  - Diarrhoea [Unknown]
  - Vomiting [Recovering/Resolving]
  - Gait disturbance [Recovering/Resolving]
